FAERS Safety Report 15430292 (Version 1)
Quarter: 2018Q3

REPORT INFORMATION
  Report Type: Spontaneous
  Country: US (occurrence: US)
  Receive Date: 20180917
  Receipt Date: 20180917
  Transmission Date: 20181010
  Serious: No
  Sender: FDA-Public Use
  Company Number: None

PATIENT
  Age: 56 Year
  Sex: Male
  Weight: 75 kg

DRUGS (2)
  1. ISENTRESS [Concomitant]
     Active Substance: RALTEGRAVIR POTASSIUM
  2. ZARXIO [Suspect]
     Active Substance: FILGRASTIM-SNDZ
     Indication: NEUTROPENIA
     Route: 058
     Dates: start: 20180308, end: 20180606

REACTIONS (6)
  - Cardiac disorder [None]
  - Liver transplant [None]
  - Infection [None]
  - Renal failure [None]
  - Dialysis [None]
  - Cerebral disorder [None]

NARRATIVE: CASE EVENT DATE: 20180914
